FAERS Safety Report 6613365-7 (Version None)
Quarter: 2010Q1

REPORT INFORMATION
  Report Type: 
  Country: None (occurrence: None)
  Receive Date: 20100304
  Receipt Date: 20100301
  Transmission Date: 20100710
  Serious: Yes (Death, Hospitalization, Other)
  Sender: FDA-Public Use
  Company Number: PHHO2008US06225

PATIENT
  Sex: Female
  Weight: 48.2 kg

DRUGS (6)
  1. STI571/CGP57148B T35717+TAB [Suspect]
     Indication: SYSTEMIC SCLEROSIS
     Dosage: 200MG
     Route: 048
     Dates: start: 20080221, end: 20080319
  2. STI571/CGP57148B T35717+TAB [Suspect]
     Dosage: UNK, NO TREATMENT
     Dates: start: 20080320, end: 20080401
  3. STI571/CGP57148B T35717+TAB [Suspect]
     Dosage: 200MG
     Dates: start: 20080402, end: 20080503
  4. MELOXICAM [Concomitant]
  5. NEXIUM [Concomitant]
  6. COZAAR [Concomitant]

REACTIONS (36)
  - ACIDOSIS [None]
  - ACTIVITIES OF DAILY LIVING IMPAIRED [None]
  - ASPIRATION PLEURAL CAVITY [None]
  - BLOOD ALBUMIN DECREASED [None]
  - BLOOD ALKALINE PHOSPHATASE INCREASED [None]
  - BLOOD PRESSURE DECREASED [None]
  - BRADYCARDIA [None]
  - CARDIAC FAILURE [None]
  - CHEST PAIN [None]
  - CONTINUOUS HAEMODIAFILTRATION [None]
  - COUGH [None]
  - DYSPNOEA [None]
  - DYSPNOEA EXERTIONAL [None]
  - ENDOTRACHEAL INTUBATION [None]
  - FACE OEDEMA [None]
  - FATIGUE [None]
  - GENERALISED OEDEMA [None]
  - HEART RATE DECREASED [None]
  - HYPOALBUMINAEMIA [None]
  - HYPOTENSION [None]
  - INTRA-AORTIC BALLOON PLACEMENT [None]
  - MECHANICAL VENTILATION [None]
  - OEDEMA PERIPHERAL [None]
  - PERICARDIAL DRAINAGE [None]
  - PERICARDIAL EFFUSION [None]
  - PERIORBITAL OEDEMA [None]
  - PLEURAL EFFUSION [None]
  - PULMONARY OEDEMA [None]
  - PULSE ABSENT [None]
  - RENAL FAILURE ACUTE [None]
  - SHOCK [None]
  - SWAN GANZ CATHETER PLACEMENT [None]
  - SYSTEMIC SCLEROSIS [None]
  - URINE OUTPUT DECREASED [None]
  - VOMITING [None]
  - WEIGHT INCREASED [None]
